FAERS Safety Report 4719562-X (Version None)
Quarter: 2005Q3

REPORT INFORMATION
  Report Type: 
  Country: None (occurrence: None)
  Receive Date: 20050719
  Receipt Date: 20050712
  Transmission Date: 20060218
  Serious: Yes (Life-Threatening, Hospitalization)
  Sender: FDA-Public Use
  Company Number: FRWYE743414JUN05

PATIENT
  Age: 58 Year
  Sex: Male

DRUGS (4)
  1. EFFEXOR [Suspect]
     Indication: MAJOR DEPRESSION
     Dosage: 150 MG DAILY ORAL
     Route: 048
     Dates: start: 20050128
  2. LORAZEPAM [Concomitant]
  3. LANSOPRAZOLE [Concomitant]
  4. MEPRONIZINE            (ACEPROMETAZINE/MEPROBAMATE) [Concomitant]

REACTIONS (3)
  - BLOOD FOLATE DECREASED [None]
  - PANCYTOPENIA [None]
  - VITAMIN B12 DEFICIENCY [None]
